FAERS Safety Report 6228676-7 (Version None)
Quarter: 2009Q2

REPORT INFORMATION
  Report Type: 
  Country: None (occurrence: None)
  Receive Date: 20090615
  Receipt Date: 20090608
  Transmission Date: 20091009
  Serious: Yes (Death, Hospitalization)
  Sender: FDA-Public Use
  Company Number: JP-SP-2009-02545

PATIENT
  Age: 76 Year
  Sex: Male

DRUGS (1)
  1. BCG  THERAPEUTICS [Suspect]
     Indication: BLADDER CANCER
     Dosage: NOT REPORTED
     Route: 043
     Dates: start: 20070501, end: 20070613

REACTIONS (4)
  - INTERSTITIAL LUNG DISEASE [None]
  - PRODUCTIVE COUGH [None]
  - PYREXIA [None]
  - RESPIRATORY FAILURE [None]
